FAERS Safety Report 13674768 (Version 1)
Quarter: 2017Q2

REPORT INFORMATION
  Report Type: Spontaneous
  Country: US (occurrence: US)
  Receive Date: 20170621
  Receipt Date: 20170621
  Transmission Date: 20170830
  Serious: No
  Sender: FDA-Public Use
  Company Number: US-PFIZER INC-2017264999

PATIENT
  Sex: Female

DRUGS (1)
  1. XELJANZ XR [Suspect]
     Active Substance: TOFACITINIB CITRATE
     Dosage: 11 MG, UNK

REACTIONS (8)
  - Chills [Unknown]
  - Joint swelling [Unknown]
  - Headache [Unknown]
  - Tenderness [Unknown]
  - Cyst [Unknown]
  - Influenza [Unknown]
  - Pain [Unknown]
  - Asthenia [Unknown]
